FAERS Safety Report 22096033 (Version 1)
Quarter: 2023Q1

REPORT INFORMATION
  Report Type: Spontaneous
  Country: GB (occurrence: GB)
  Receive Date: 20230315
  Receipt Date: 20230315
  Transmission Date: 20230418
  Serious: Yes (Other)
  Sender: FDA-Public Use
  Company Number: GB-BAXTER-2023BAX015375

PATIENT
  Sex: Male

DRUGS (4)
  1. DOXORUBICIN HYDROCHLORIDE [Suspect]
     Active Substance: DOXORUBICIN HYDROCHLORIDE
     Indication: Kaposi^s sarcoma
     Dosage: 3 COURSES
     Route: 065
  2. DOXORUBICIN HYDROCHLORIDE [Suspect]
     Active Substance: DOXORUBICIN HYDROCHLORIDE
     Indication: HIV test negative
  3. PACLITAXEL [Suspect]
     Active Substance: PACLITAXEL
     Indication: Kaposi^s sarcoma
     Dosage: ONE COURSE
     Route: 065
  4. PACLITAXEL [Suspect]
     Active Substance: PACLITAXEL
     Indication: HIV test negative

REACTIONS (1)
  - Disease progression [Unknown]
